FAERS Safety Report 9562682 (Version 1)
Quarter: 2013Q3

REPORT INFORMATION
  Report Type: Spontaneous
  Country: US (occurrence: US)
  Receive Date: 20130927
  Receipt Date: 20130927
  Transmission Date: 20140515
  Serious: No
  Sender: FDA-Public Use
  Company Number: US-PFIZER INC-2013275768

PATIENT
  Sex: Female

DRUGS (2)
  1. CELEBREX [Suspect]
     Indication: CARPAL TUNNEL SYNDROME
     Dosage: 200 MG
     Route: 048
  2. CELEBREX [Suspect]
     Indication: TENDONITIS
     Dosage: 200 MG, 2X/DAY
     Route: 048
     Dates: start: 20130923

REACTIONS (4)
  - Drug prescribing error [Unknown]
  - Off label use [Unknown]
  - Insomnia [Unknown]
  - Pain [Not Recovered/Not Resolved]
